FAERS Safety Report 26115068 (Version 1)
Quarter: 2025Q4

REPORT INFORMATION
  Report Type: Spontaneous
  Country: US (occurrence: US)
  Receive Date: 20251203
  Receipt Date: 20251203
  Transmission Date: 20260118
  Serious: Yes (Hospitalization)
  Sender: SANOFI AVENTIS
  Company Number: US-DialogSolutions-SAAVPROD-PI846148-C1

PATIENT
  Age: 32 Year
  Sex: Female

DRUGS (2)
  1. ENOXAPARIN SODIUM [Suspect]
     Active Substance: ENOXAPARIN SODIUM
     Indication: Transverse sinus thrombosis
     Dosage: 80 MG, BID
     Route: 058
  2. ENOXAPARIN SODIUM [Suspect]
     Active Substance: ENOXAPARIN SODIUM
     Indication: Cerebral infarction

REACTIONS (4)
  - Abdominal pain [Recovered/Resolved]
  - Exposure during pregnancy [Recovered/Resolved]
  - Abdominal discomfort [Recovered/Resolved]
  - Vaginal haemorrhage [Recovered/Resolved]
